FAERS Safety Report 17144621 (Version 1)
Quarter: 2019Q4

REPORT INFORMATION
  Report Type: Spontaneous
  Country: SE (occurrence: SE)
  Receive Date: 20191212
  Receipt Date: 20191212
  Transmission Date: 20200122
  Serious: Yes (Hospitalization)
  Sender: FDA-Public Use
  Company Number: SE-JNJFOC-20191206107

PATIENT
  Age: 16 Year
  Sex: Female

DRUGS (4)
  1. THERALEN [Suspect]
     Active Substance: TRIMEPRAZINE
     Indication: PRODUCT USED FOR UNKNOWN INDICATION
     Dosage: 3 PIECES ?GENERIC: ALIMEMAZINE/ALIMEMAZINE HEMITARTRATE
     Route: 048
     Dates: start: 20181009, end: 20181009
  2. IPREN UNSPECIFIED [Suspect]
     Active Substance: IBUPROFEN
     Indication: PRODUCT USED FOR UNKNOWN INDICATION
     Dosage: 3 ST?IBUPROFEN/IBUPROFEN DC 85
     Route: 048
     Dates: start: 20181009, end: 20181009
  3. RITALIN [Suspect]
     Active Substance: METHYLPHENIDATE HYDROCHLORIDE
     Indication: PRODUCT USED FOR UNKNOWN INDICATION
     Dosage: 2 PIECES (METHYLPHENIDATE/METHYLPHENIDATE HYDROCHLORIDE)
     Route: 048
     Dates: start: 20181009, end: 20181009
  4. LERGIGAN                           /00033002/ [Suspect]
     Active Substance: PROMETHAZINE HYDROCHLORIDE
     Indication: PRODUCT USED FOR UNKNOWN INDICATION
     Dosage: 15 TABLETS LERGIGAN 25 MG AND 5 MG?PROMETHAZINE/PROMETHAZINE HYDROCHLORIDE
     Route: 048
     Dates: start: 20181009, end: 20181009

REACTIONS (6)
  - Intentional overdose [Unknown]
  - Tachycardia [Unknown]
  - Intentional self-injury [Unknown]
  - Anxiety [Unknown]
  - Palpitations [Unknown]
  - Nausea [Unknown]

NARRATIVE: CASE EVENT DATE: 20181009
